FAERS Safety Report 16388955 (Version 2)
Quarter: 2019Q3

REPORT INFORMATION
  Report Type: Spontaneous
  Country: US (occurrence: US)
  Receive Date: 20190604
  Receipt Date: 20190710
  Transmission Date: 20191004
  Serious: Yes (Hospitalization)
  Sender: FDA-Public Use
  Company Number: US-CHIESI USA, INC.-US-2019CHI000207

PATIENT

DRUGS (1)
  1. BETHKIS [Suspect]
     Active Substance: TOBRAMYCIN
     Indication: CYSTIC FIBROSIS
     Dosage: 300 MG, BID
     Route: 055
     Dates: start: 20170410, end: 20190402

REACTIONS (3)
  - Off label use [Recovered/Resolved]
  - Conjunctivitis [Recovered/Resolved]
  - Tracheostomy tube removal [Unknown]

NARRATIVE: CASE EVENT DATE: 20170410
